FAERS Safety Report 9587431 (Version 1)
Quarter: 2013Q4

REPORT INFORMATION
  Report Type: Report from Study
  Country: BR (occurrence: BR)
  Receive Date: 20131003
  Receipt Date: 20131003
  Transmission Date: 20140711
  Serious: Yes (Hospitalization, Other)
  Sender: FDA-Public Use
  Company Number: PHHY2013BR108431

PATIENT
  Age: 47 Year
  Sex: Male
  Weight: 68 kg

DRUGS (2)
  1. OCTREOTIDE [Suspect]
     Indication: GIGANTISM
     Dosage: 1 AMPOULE (20 MG)
  2. OCTREOTIDE [Suspect]
     Indication: HORMONE LEVEL ABNORMAL
     Dosage: 1 AMPOULE (20 MG)
     Dates: start: 20130916

REACTIONS (2)
  - Intestinal prolapse [Recovering/Resolving]
  - Gait disturbance [Recovering/Resolving]
